FAERS Safety Report 7632316-X (Version None)
Quarter: 2011Q3

REPORT INFORMATION
  Report Type: 
  Country: None (occurrence: None)
  Receive Date: 20110725
  Receipt Date: 20100728
  Transmission Date: 20111222
  Serious: No
  Sender: FDA-Public Use
  Company Number: US-BRISTOL-MYERS SQUIBB COMPANY-15214026

PATIENT
  Age: 84 Year
  Sex: Female

DRUGS (3)
  1. DIGOXIN [Concomitant]
  2. LORAZEPAM [Concomitant]
  3. COUMADIN [Suspect]
     Dosage: COUMADIN USED IN PAST,STOPPED,RESTARTED.

REACTIONS (1)
  - SKIN DISCOLOURATION [None]
